FAERS Safety Report 15490570 (Version 2)
Quarter: 2018Q4

REPORT INFORMATION
  Report Type: Spontaneous
  Country: IT (occurrence: IT)
  Receive Date: 20181011
  Receipt Date: 20181206
  Transmission Date: 20190205
  Serious: Yes (Hospitalization)
  Sender: FDA-Public Use
  Company Number: IT-BIOGEN-2018BI00643767

PATIENT
  Age: 19 Year
  Sex: Male

DRUGS (1)
  1. SPINRAZA [Suspect]
     Active Substance: NUSINERSEN
     Indication: SPINAL MUSCULAR ATROPHY
     Route: 065
     Dates: start: 20180911, end: 201809

REACTIONS (3)
  - Post procedural haemorrhage [Recovered/Resolved]
  - Post lumbar puncture syndrome [Unknown]
  - Procedural pain [Unknown]

NARRATIVE: CASE EVENT DATE: 20180911
